FAERS Safety Report 7558227-6 (Version None)
Quarter: 2011Q2

REPORT INFORMATION
  Report Type: 
  Country: None (occurrence: None)
  Receive Date: 20110620
  Receipt Date: 20110607
  Transmission Date: 20111010
  Serious: Yes (Hospitalization, Other)
  Sender: FDA-Public Use
  Company Number: GB-MYLANLABS-2011S1011768

PATIENT
  Age: 49 Year
  Sex: Male

DRUGS (4)
  1. OXYBUTYNIN [Suspect]
     Indication: URINARY INCONTINENCE
     Dates: start: 20050331, end: 20051001
  2. ANTIBIOTICS [Concomitant]
     Indication: PRODUCT USED FOR UNKNOWN INDICATION
  3. CLOZAPINE [Suspect]
     Indication: SCHIZOPHRENIA
     Dates: start: 20010616, end: 20051025
  4. CITALOPRAM HYDROBROMIDE [Concomitant]
     Indication: ANXIETY
     Route: 048
     Dates: start: 20030101, end: 20051001

REACTIONS (2)
  - RENAL FAILURE [None]
  - URINARY RETENTION [None]
